FAERS Safety Report 4980192-6 (Version None)
Quarter: 2006Q2

REPORT INFORMATION
  Report Type: 
  Country: None (occurrence: None)
  Receive Date: 20060424
  Receipt Date: 20060412
  Transmission Date: 20061013
  Serious: Yes (Other)
  Sender: FDA-Public Use
  Company Number: IT-NOVOPROD-252499

PATIENT
  Age: 53 Year
  Sex: Female
  Weight: 92 kg

DRUGS (7)
  1. LEVEMIR [Suspect]
     Indication: INSULIN-REQUIRING TYPE II DIABETES MELLITUS
     Dates: start: 20060407, end: 20060407
  2. HUMALOG [Concomitant]
     Dosage: 34 IU, QD
     Route: 058
  3. TRIATEC [Concomitant]
     Dosage: 5 MG, QD
     Route: 048
  4. LASIX [Concomitant]
     Dosage: 125 MG, QD
     Route: 048
  5. ASPIRIN [Concomitant]
     Dosage: 100 MG, QD
     Route: 048
  6. ANSIOLIN [Concomitant]
  7. MODURETIC 5-50 [Concomitant]

REACTIONS (3)
  - CHOKING SENSATION [None]
  - RASH [None]
  - URTICARIA [None]
